FAERS Safety Report 5506330-4 (Version None)
Quarter: 2007Q4

REPORT INFORMATION
  Report Type: 
  Country: None (occurrence: None)
  Receive Date: 20071105
  Receipt Date: 20071026
  Transmission Date: 20080405
  Serious: Yes (Other)
  Sender: FDA-Public Use
  Company Number: PHBS2006JP04135

PATIENT
  Age: 72 Year
  Sex: Female
  Weight: 47 kg

DRUGS (2)
  1. AREDIA [Suspect]
     Indication: METASTASES TO BONE
     Dosage: 90 MG, EVERY 4 WEEKS
     Route: 042
     Dates: start: 20050204, end: 20060123
  2. BISPHONAL [Suspect]
     Dosage: 10 MG, EVERY 4 WEEKS
     Route: 042
     Dates: start: 20031024, end: 20050121

REACTIONS (10)
  - ACTINOMYCOSIS [None]
  - C-REACTIVE PROTEIN INCREASED [None]
  - ERYTHEMA [None]
  - FISTULA [None]
  - ORAL PRURITUS [None]
  - OSTEONECROSIS [None]
  - PAIN IN JAW [None]
  - SWELLING [None]
  - TOOTH EXTRACTION [None]
  - WHITE BLOOD CELL COUNT INCREASED [None]
